FAERS Safety Report 23462822 (Version 6)
Quarter: 2025Q2

REPORT INFORMATION
  Report Type: Spontaneous
  Country: US (occurrence: US)
  Receive Date: 20240131
  Receipt Date: 20250605
  Transmission Date: 20250716
  Serious: No
  Sender: PFIZER
  Company Number: US-PFIZER INC-PV202300016744

PATIENT
  Age: 60 Year
  Sex: Female
  Weight: 63.22 kg

DRUGS (3)
  1. PREMARIN [Suspect]
     Active Substance: ESTROGENS, CONJUGATED
     Indication: Menopause
     Route: 048
     Dates: start: 20220112, end: 20220531
  2. PREMARIN [Suspect]
     Active Substance: ESTROGENS, CONJUGATED
     Dosage: 1.25 MG, 1X/DAY
     Route: 048
     Dates: start: 20230919
  3. CELEBREX [Concomitant]
     Active Substance: CELECOXIB

REACTIONS (2)
  - Fatigue [Unknown]
  - Product dispensing error [Unknown]
